FAERS Safety Report 25450964 (Version 2)
Quarter: 2025Q3

REPORT INFORMATION
  Report Type: Spontaneous
  Country: US (occurrence: US)
  Receive Date: 20250618
  Receipt Date: 20250715
  Transmission Date: 20251020
  Serious: Yes (Other)
  Sender: DOMPE FARMACEUTICI
  Company Number: US-FARMAPROD-202505-1761

PATIENT
  Age: 63 Year
  Sex: Male

DRUGS (7)
  1. OXERVATE [Suspect]
     Active Substance: CENEGERMIN-BKBJ
     Indication: Neurotrophic keratopathy
     Route: 047
     Dates: start: 20250507, end: 20250610
  2. OFLOXACIN [Concomitant]
     Active Substance: OFLOXACIN
  3. OASIS TEARS [Concomitant]
     Active Substance: GLYCERIN
  4. VITAMIN C [Concomitant]
     Active Substance: ASCORBIC ACID
     Route: 048
  5. DOXYCYCLINE [Concomitant]
     Active Substance: DOXYCYCLINE
     Dosage: TWO TIMES A DAY
     Route: 048
  6. DIAMOX SEQUELS [Concomitant]
     Active Substance: ACETAZOLAMIDE
     Dosage: TWO TIMES A DAY
  7. VALTREX [Concomitant]
     Active Substance: VALACYCLOVIR HYDROCHLORIDE
     Dosage: TWO TIMES A DAY
     Route: 048

REACTIONS (3)
  - Keratitis bacterial [Not Recovered/Not Resolved]
  - Eye pain [Unknown]
  - Eye irritation [Unknown]

NARRATIVE: CASE EVENT DATE: 20250515
